FAERS Safety Report 23689795 (Version 3)
Quarter: 2024Q3

REPORT INFORMATION
  Report Type: Spontaneous
  Country: JP (occurrence: JP)
  Receive Date: 20240331
  Receipt Date: 20240708
  Transmission Date: 20241016
  Serious: Yes (Hospitalization)
  Sender: JOHNSON AND JOHNSON
  Company Number: JP-JNJFOC-20240376875

PATIENT
  Age: 6 Decade
  Sex: Female

DRUGS (10)
  1. EDURANT [Suspect]
     Active Substance: RILPIVIRINE HYDROCHLORIDE
     Indication: HIV infection
     Route: 048
     Dates: start: 20221007, end: 20221011
  2. RILPIVIRINE [Concomitant]
     Active Substance: RILPIVIRINE
     Indication: HIV infection
     Route: 030
     Dates: start: 20221111
  3. VOCABRIA [Concomitant]
     Active Substance: CABOTEGRAVIR SODIUM
     Indication: HIV infection
     Route: 048
     Dates: start: 20221007, end: 20221111
  4. VOCABRIA [Concomitant]
     Active Substance: CABOTEGRAVIR SODIUM
     Indication: HIV infection
     Route: 030
     Dates: start: 20221111
  5. AZITHROMYCIN DIHYDRATE [Concomitant]
     Active Substance: AZITHROMYCIN DIHYDRATE
     Indication: Pneumonia
     Dosage: DOSE UNKNOWN
     Route: 065
     Dates: start: 20240221, end: 20240223
  6. ROCEPHIN [Concomitant]
     Active Substance: CEFTRIAXONE SODIUM
     Indication: Pneumonia
     Dosage: DOSE UNKNOWN
     Route: 065
     Dates: start: 20240222, end: 20240226
  7. MONTELUKAST [Concomitant]
     Active Substance: MONTELUKAST SODIUM
     Indication: Pneumonia
     Dosage: DOSE UNKNOWN
     Route: 048
     Dates: start: 20240221, end: 20240226
  8. CARBOCYSTEINE [Concomitant]
     Active Substance: CARBOCYSTEINE
     Indication: Pneumonia
     Dosage: DOSE UNKNOWN
     Route: 048
     Dates: start: 20240221, end: 20240304
  9. CLOPERASTINE FENDIZOATE [Concomitant]
     Active Substance: CLOPERASTINE FENDIZOATE
     Indication: Pneumonia
     Dosage: DOSE UNKNOWN
     Route: 048
     Dates: start: 20240221, end: 20240226
  10. DEXTROMETHORPHAN HYDROBROMIDE [Concomitant]
     Active Substance: DEXTROMETHORPHAN HYDROBROMIDE
     Indication: Pneumonia
     Dosage: DOSE UNKNOWN
     Route: 048
     Dates: start: 20240226, end: 20240304

REACTIONS (1)
  - Pneumonia [Recovered/Resolved]

NARRATIVE: CASE EVENT DATE: 20240219
